FAERS Safety Report 24555654 (Version 1)
Quarter: 2024Q4

REPORT INFORMATION
  Report Type: Spontaneous
  Country: US (occurrence: None)
  Receive Date: 20241025
  Receipt Date: 20241025
  Transmission Date: 20250115
  Serious: Yes (unspecified)
  Sender: Public
  Company Number: None

PATIENT
  Age: 44 Year
  Sex: Female
  Weight: 65.25 kg

DRUGS (5)
  1. TAFINLAR [Suspect]
     Active Substance: DABRAFENIB MESYLATE
     Indication: Malignant melanoma
     Dosage: 150 MG TWICE A DAY ORAL ?
     Route: 048
     Dates: start: 20240904, end: 20241022
  2. MEKINIST [Suspect]
     Active Substance: TRAMETINIB DIMETHYL SULFOXIDE
     Indication: Malignant melanoma
     Dosage: 2 MG DAILY ORAL
     Route: 048
     Dates: start: 20240904, end: 20241022
  3. TRINTELLIX [Concomitant]
     Active Substance: VORTIOXETINE HYDROBROMIDE
  4. TRAMADOL [Concomitant]
     Active Substance: TRAMADOL
  5. Fluticasone Propionate 0.005% [Concomitant]

REACTIONS (6)
  - Chills [None]
  - Drug intolerance [None]
  - Neuropathy peripheral [None]
  - Trigger points [None]
  - Gait disturbance [None]
  - Rash [None]

NARRATIVE: CASE EVENT DATE: 20241023
